FAERS Safety Report 4879526-2 (Version None)
Quarter: 2006Q1

REPORT INFORMATION
  Report Type: 
  Country: None (occurrence: None)
  Receive Date: 20060111
  Receipt Date: 20051221
  Transmission Date: 20060701
  Serious: Yes (Other)
  Sender: FDA-Public Use
  Company Number: US200512004209

PATIENT
  Sex: Female

DRUGS (1)
  1. TERIPARATIDE (TERIPARATIDE)PEN, DISPOSABLE [Suspect]
     Dosage: 20, SUBCUTANEOUS
     Route: 058
     Dates: start: 20050808, end: 20050910

REACTIONS (5)
  - DIZZINESS [None]
  - FATIGUE [None]
  - HEART RATE INCREASED [None]
  - LOSS OF CONSCIOUSNESS [None]
  - NON-CARDIAC CHEST PAIN [None]
